FAERS Safety Report 24859455 (Version 1)
Quarter: 2025Q1

REPORT INFORMATION
  Report Type: Other
  Country: GB (occurrence: GB)
  Receive Date: 20250119
  Receipt Date: 20250119
  Transmission Date: 20250408
  Serious: Yes (Hospitalization, Other)
  Sender: DEXCEL
  Company Number: GB-DEXPHARM-2025-0586

PATIENT
  Sex: Male

DRUGS (4)
  1. CLOZAPINE [Interacting]
     Active Substance: CLOZAPINE
  2. CLOZAPINE [Interacting]
     Active Substance: CLOZAPINE
  3. OMEPRAZOLE [Interacting]
     Active Substance: OMEPRAZOLE
  4. AMISULPRIDE [Concomitant]
     Active Substance: AMISULPRIDE

REACTIONS (2)
  - Agranulocytosis [Recovered/Resolved]
  - Drug interaction [Recovered/Resolved]
